FAERS Safety Report 23262129 (Version 2)
Quarter: 2023Q4

REPORT INFORMATION
  Report Type: Spontaneous
  Country: RU (occurrence: RU)
  Receive Date: 20231205
  Receipt Date: 20231208
  Transmission Date: 20240109
  Serious: Yes (Other)
  Sender: FDA-Public Use
  Company Number: RU-Korea IPSEN-2023-26862

PATIENT
  Sex: Female

DRUGS (3)
  1. LANREOTIDE ACETATE [Suspect]
     Active Substance: LANREOTIDE ACETATE
     Indication: Product used for unknown indication
     Dosage: 1 DOSE 1 TIME A DAY (IN THE AFTERNOON)
     Route: 030
     Dates: start: 202105
  2. LANREOTIDE ACETATE [Suspect]
     Active Substance: LANREOTIDE ACETATE
     Dosage: GEL FOR SUBCUTANEOUS INJECTION WITH PROLONGED ACTION; 1 TIME A DAY (IN THE AFTERNOON)
     Route: 058
  3. EVEROLIMUS [Suspect]
     Active Substance: EVEROLIMUS
     Indication: Product used for unknown indication
     Dosage: 10 MG PER DAY
     Route: 065

REACTIONS (4)
  - Rectal haemorrhage [Unknown]
  - Blood pressure increased [Unknown]
  - Asthenia [Unknown]
  - Off label use [Unknown]
